FAERS Safety Report 9753662 (Version 1)
Quarter: 2013Q4

REPORT INFORMATION
  Report Type: Spontaneous
  Country: US (occurrence: US)
  Receive Date: 20131213
  Receipt Date: 20131213
  Transmission Date: 20140711
  Serious: Yes (Hospitalization)
  Sender: FDA-Public Use
  Company Number: US-B.I. PHARMACEUTICALS,INC./RIDGEFIELD-2013-BI-41413BP

PATIENT
  Age: 81 Year
  Sex: Female
  Weight: 97 kg

DRUGS (10)
  1. COMBIVENT [Suspect]
     Indication: CHRONIC OBSTRUCTIVE PULMONARY DISEASE
     Dosage: STRENGTH: 18 MCG / 103 MCG; DAILY DOSE: 144MCG/824MCG
     Route: 055
     Dates: start: 2009
  2. ALBUTEROL [Concomitant]
     Indication: CHRONIC OBSTRUCTIVE PULMONARY DISEASE
     Dosage: 5 ML
     Route: 055
  3. SYMBICORT 160/4.5 [Concomitant]
     Indication: CHRONIC OBSTRUCTIVE PULMONARY DISEASE
     Dosage: 4 PUF
     Route: 055
  4. ZETIA [Concomitant]
     Indication: BLOOD CHOLESTEROL INCREASED
     Dosage: 10 MG
     Route: 048
  5. MECLIZINE [Concomitant]
     Indication: DIZZINESS
     Route: 048
  6. AMLODIPINE [Concomitant]
     Indication: HYPERTENSION
     Dosage: 2.5 MG
     Route: 048
  7. LEVOTHYROXINE [Concomitant]
     Dosage: 100 MCG
     Route: 048
  8. BISOPROLOL [Concomitant]
     Indication: HYPERTENSION
     Dosage: 5 MG
  9. BAYER ASPIRIN [Concomitant]
     Dosage: 325 MG
     Route: 048
  10. ALPRAZOLAM [Concomitant]
     Indication: ANXIETY
     Dosage: 0.25 MG
     Route: 048

REACTIONS (2)
  - Chronic obstructive pulmonary disease [Recovered/Resolved]
  - Arthralgia [Unknown]
